FAERS Safety Report 13384630 (Version 1)
Quarter: 2017Q1

REPORT INFORMATION
  Report Type: Spontaneous
  Country: US (occurrence: US)
  Receive Date: 20170329
  Receipt Date: 20170329
  Transmission Date: 20170429
  Serious: No
  Sender: FDA-Public Use
  Company Number: US-ALLERGAN-1703243US

PATIENT
  Sex: Male

DRUGS (1)
  1. NORCO [Suspect]
     Active Substance: ACETAMINOPHEN\HYDROCODONE BITARTRATE
     Indication: BREAKTHROUGH PAIN
     Dosage: 325 MG, BID
     Route: 065
     Dates: start: 2012

REACTIONS (5)
  - Insomnia [Unknown]
  - Dyspnoea [Unknown]
  - Pain [Unknown]
  - Therapeutic response decreased [Unknown]
  - Paraesthesia [Unknown]
